FAERS Safety Report 25707975 (Version 1)
Quarter: 2025Q3

REPORT INFORMATION
  Report Type: Spontaneous
  Country: US (occurrence: US)
  Receive Date: 20250820
  Receipt Date: 20250820
  Transmission Date: 20251021
  Serious: No
  Sender: MERCK SHARP & DOHME LLC
  Company Number: US-009507513-2320515

PATIENT
  Sex: Male
  Weight: 161.5 kg

DRUGS (18)
  1. SOTATERCEPT [Suspect]
     Active Substance: SOTATERCEPT
     Indication: Product used for unknown indication
  2. SOTATERCEPT [Suspect]
     Active Substance: SOTATERCEPT
  3. SOTATERCEPT [Suspect]
     Active Substance: SOTATERCEPT
  4. SOTATERCEPT [Suspect]
     Active Substance: SOTATERCEPT
  5. REMODULIN [Suspect]
     Active Substance: TREPROSTINIL
     Indication: Pulmonary arterial hypertension
     Route: 058
     Dates: start: 20181113
  6. OMEPRAZOLE [Concomitant]
     Active Substance: OMEPRAZOLE
  7. XIFAXAN [Concomitant]
     Active Substance: RIFAXIMIN
  8. IBUPROFEN [Concomitant]
     Active Substance: IBUPROFEN
  9. CITALOPRAM HYDROBROMIDE [Concomitant]
     Active Substance: CITALOPRAM HYDROBROMIDE
  10. PFIZER-BIONTECH COVID-19 VACCINE [Concomitant]
     Active Substance: TOZINAMERAN
  11. TADALAFIL [Concomitant]
     Active Substance: TADALAFIL
  12. URSODIOL [Concomitant]
     Active Substance: URSODIOL
  13. LACTULOSE [Concomitant]
     Active Substance: LACTULOSE
  14. IRON [Concomitant]
     Active Substance: IRON
  15. POLYETHYLENE GLYCOL [Concomitant]
     Active Substance: POLYETHYLENE GLYCOL
  16. MONTELUKAST SODIUM [Concomitant]
     Active Substance: MONTELUKAST SODIUM
  17. GABAPENTIN [Concomitant]
     Active Substance: GABAPENTIN
  18. LORATADINE [Concomitant]
     Active Substance: LORATADINE

REACTIONS (1)
  - Haemoglobin increased [Unknown]
